FAERS Safety Report 13108764 (Version 1)
Quarter: 2017Q1

REPORT INFORMATION
  Report Type: Spontaneous
  Country: US (occurrence: US)
  Receive Date: 20170112
  Receipt Date: 20170112
  Transmission Date: 20170428
  Serious: Yes (Other)
  Sender: FDA-Public Use
  Company Number: None

PATIENT
  Age: 29 Year
  Sex: Male
  Weight: 67.05 kg

DRUGS (8)
  1. SUMATRIPTAN SUCCINATE. [Suspect]
     Active Substance: SUMATRIPTAN SUCCINATE
     Indication: MIGRAINE
     Dosage: ?          QUANTITY:1 TABLET(S);?
     Route: 048
  2. ALBUTEROL SULFATE. [Concomitant]
     Active Substance: ALBUTEROL SULFATE
  3. OMEPRAZOLE. [Concomitant]
     Active Substance: OMEPRAZOLE
  4. ACETAMINOPHEN. [Concomitant]
     Active Substance: ACETAMINOPHEN
  5. FLONASE [Concomitant]
     Active Substance: FLUTICASONE PROPIONATE
  6. FLONASE [Concomitant]
     Active Substance: FLUTICASONE PROPIONATE
  7. TUMS [Concomitant]
     Active Substance: CALCIUM CARBONATE
  8. LORATADINE. [Concomitant]
     Active Substance: LORATADINE

REACTIONS (2)
  - Impaired driving ability [None]
  - Somnambulism [None]

NARRATIVE: CASE EVENT DATE: 20170110
